FAERS Safety Report 8436021-1 (Version None)
Quarter: 2012Q2

REPORT INFORMATION
  Report Type: 
  Country: None (occurrence: None)
  Receive Date: 20120608
  Receipt Date: 20120604
  Transmission Date: 20120825
  Serious: Yes (Hospitalization)
  Sender: FDA-Public Use
  Company Number: AUR-APL-2012-02523

PATIENT
  Age: 62 Year
  Sex: Female
  Weight: 90.7 kg

DRUGS (6)
  1. LISINOPRIL AND HYDROCHLOROTHIAZIDE [Suspect]
     Indication: HYPERTENSION
     Dosage: 10/12.5MG (1 D), 20/25 MG (1 D), 10/12.5 MG
     Dates: start: 20111201, end: 20111201
  2. LISINOPRIL AND HYDROCHLOROTHIAZIDE [Suspect]
     Indication: HYPERTENSION
     Dosage: 10/12.5MG (1 D), 20/25 MG (1 D), 10/12.5 MG
     Dates: start: 20111201
  3. LISINOPRIL AND HYDROCHLOROTHIAZIDE [Suspect]
     Indication: HYPERTENSION
     Dosage: 10/12.5MG (1 D), 20/25 MG (1 D), 10/12.5 MG
     Dates: start: 20111201
  4. CIPROFLOXACIN [Suspect]
     Indication: URINARY TRACT INFECTION
     Dosage: 1000 MG (500 MG, 1 IN 12 HR), ORAL
     Route: 048
     Dates: start: 20111201, end: 20111201
  5. OMEPRAZOLE [Suspect]
     Indication: GASTROOESOPHAGEAL REFLUX DISEASE
     Dosage: (20 MG, AS REQUIRED)
  6. ACCUPRIL [Suspect]
     Indication: HYPERTENSION
     Dosage: (5 MG, 1 D), ORAL
     Route: 048
     Dates: start: 20111201, end: 20120501

REACTIONS (7)
  - INAPPROPRIATE SCHEDULE OF DRUG ADMINISTRATION [None]
  - URINARY TRACT INFECTION [None]
  - GASTROOESOPHAGEAL REFLUX DISEASE [None]
  - LUNG NEOPLASM [None]
  - HYPOAESTHESIA [None]
  - CHEST DISCOMFORT [None]
  - DRUG INTOLERANCE [None]
